FAERS Safety Report 13233052 (Version 1)
Quarter: 2017Q1

REPORT INFORMATION
  Report Type: Spontaneous
  Country: US (occurrence: US)
  Receive Date: 20170214
  Receipt Date: 20170214
  Transmission Date: 20170428
  Serious: No
  Sender: FDA-Public Use
  Company Number: US-ALLERGAN-1654463US

PATIENT
  Sex: Female
  Weight: 112.93 kg

DRUGS (5)
  1. BOTOX [Suspect]
     Active Substance: ONABOTULINUMTOXINA
     Dosage: UNK
  2. BOTOX [Suspect]
     Active Substance: ONABOTULINUMTOXINA
     Dosage: 155 UNITS, SINGLE
     Route: 030
     Dates: start: 20160119, end: 20160119
  3. CYMBALTA [Concomitant]
     Active Substance: DULOXETINE HYDROCHLORIDE
     Indication: NEURALGIA
     Dosage: UNK
     Route: 048
     Dates: start: 2006
  4. BOTOX [Suspect]
     Active Substance: ONABOTULINUMTOXINA
     Indication: MIGRAINE
     Dosage: UNK, SINGLE
     Route: 030
     Dates: start: 20151227, end: 20151227
  5. TRAZODONE [Concomitant]
     Active Substance: TRAZODONE HYDROCHLORIDE
     Indication: MUSCLE SPASMS
     Dosage: UNK
     Route: 048
     Dates: start: 2006

REACTIONS (7)
  - Immunodeficiency [Recovered/Resolved]
  - Dysphonia [Recovered/Resolved]
  - Hypocalcaemia [Unknown]
  - Abdominal discomfort [Recovered/Resolved]
  - Headache [Unknown]
  - Upper respiratory tract infection [Recovered/Resolved]
  - Eye infection [Recovered/Resolved]
